FAERS Safety Report 9807760 (Version 1)
Quarter: 2014Q1

REPORT INFORMATION
  Report Type: Spontaneous
  Country: US (occurrence: US)
  Receive Date: 20140110
  Receipt Date: 20140110
  Transmission Date: 20141002
  Serious: Yes (Death, Other)
  Sender: FDA-Public Use
  Company Number: US-ASTRAZENECA-2014SE01202

PATIENT
  Age: 70 Year
  Sex: Male

DRUGS (2)
  1. BRILINTA [Suspect]
     Indication: THROMBOSIS PROPHYLAXIS
     Route: 048
     Dates: start: 201312
  2. BABY ASPIRIN [Concomitant]
     Indication: PROPHYLAXIS

REACTIONS (3)
  - Cerebral haemorrhage [Fatal]
  - Headache [Unknown]
  - Hypertension [Unknown]
